FAERS Safety Report 8960231 (Version 2)
Quarter: 2013Q1

REPORT INFORMATION
  Report Type: Spontaneous
  Country: US (occurrence: US)
  Receive Date: 20121211
  Receipt Date: 20130319
  Transmission Date: 20140127
  Serious: Yes (Hospitalization)
  Sender: FDA-Public Use
  Company Number: US-PFIZER INC-2012303764

PATIENT
  Age: 49 Year
  Sex: Female

DRUGS (6)
  1. VANCOMYCIN [Suspect]
     Indication: WOUND INFECTION
     Dosage: UNK
  2. FLUCONAZOLE [Suspect]
     Indication: ORAL CANDIDIASIS
     Dosage: UNK
  3. CEFAZOLIN [Suspect]
     Indication: WOUND INFECTION
     Dosage: UNK
  4. FLUOXETINE HCL [Suspect]
     Indication: DEPRESSION
  5. TICARCILLIN DISODIUM/CLAVULANATE POTASSIUM [Suspect]
     Indication: WOUND INFECTION
     Dosage: UNK
  6. HYDROCODONE [Suspect]
     Indication: PAIN
     Dosage: UNK

REACTIONS (2)
  - Drug resistance [Unknown]
  - Linear IgA disease [Recovered/Resolved]
